FAERS Safety Report 18046377 (Version 1)
Quarter: 2020Q3

REPORT INFORMATION
  Report Type: Spontaneous
  Country: ES (occurrence: ES)
  Receive Date: 20200721
  Receipt Date: 20200721
  Transmission Date: 20201103
  Serious: Yes (Other)
  Sender: FDA-Public Use
  Company Number: ES-ROCHE-2643066

PATIENT
  Age: 53 Year
  Sex: Male

DRUGS (5)
  1. ENOXAPARINA [Suspect]
     Active Substance: ENOXAPARIN
     Route: 058
     Dates: start: 20200418, end: 20200421
  2. ENOXAPARINA [Suspect]
     Active Substance: ENOXAPARIN
     Indication: THROMBOSIS PROPHYLAXIS
     Route: 058
     Dates: start: 20200415, end: 20200417
  3. ENOXAPARINA [Suspect]
     Active Substance: ENOXAPARIN
     Route: 058
     Dates: start: 20200326, end: 20200329
  4. ROACTEMRA [Suspect]
     Active Substance: TOCILIZUMAB
     Indication: COVID-19 PNEUMONIA
     Route: 042
     Dates: start: 20200326, end: 20200326
  5. ENOXAPARINA [Suspect]
     Active Substance: ENOXAPARIN
     Route: 058
     Dates: start: 20200330, end: 20200414

REACTIONS (3)
  - Anaemia [Recovering/Resolving]
  - Duodenal ulcer haemorrhage [Recovering/Resolving]
  - Duodenal perforation [Recovering/Resolving]

NARRATIVE: CASE EVENT DATE: 20200414
